FAERS Safety Report 18092491 (Version 1)
Quarter: 2020Q3

REPORT INFORMATION
  Report Type: Spontaneous
  Country: US (occurrence: US)
  Receive Date: 20200730
  Receipt Date: 20200730
  Transmission Date: 20201103
  Serious: No
  Sender: FDA-Public Use
  Company Number: US-PFIZER INC-2020288386

PATIENT
  Age: 55 Year
  Sex: Female
  Weight: 107.03 kg

DRUGS (1)
  1. IBRANCE [Suspect]
     Active Substance: PALBOCICLIB
     Indication: BREAST NEOPLASM
     Dosage: 75 MG, CYCLIC (1 DAILY FOR 21 DAYS)
     Route: 048
     Dates: start: 20200710

REACTIONS (2)
  - Joint swelling [Unknown]
  - Skin lesion [Unknown]

NARRATIVE: CASE EVENT DATE: 20200727
